FAERS Safety Report 7671813-8 (Version None)
Quarter: 2011Q3

REPORT INFORMATION
  Report Type: 
  Country: None (occurrence: None)
  Receive Date: 20110725
  Receipt Date: 20110720
  Transmission Date: 20111222
  Serious: Yes (Other)
  Sender: FDA-Public Use
  Company Number: 2011029224

PATIENT
  Age: 61 Year
  Sex: Female
  Weight: 81.6475 kg

DRUGS (10)
  1. FLUTICASONE PROPIONATE [Concomitant]
  2. TRAMADOL HCL [Concomitant]
  3. HIZENTRA [Suspect]
     Indication: IMMUNODEFICIENCY COMMON VARIABLE
     Dosage: 5 G 1X/WEEK, 1 GM 5 ML VIAL, 25 ML SUBCUTANEOUS
     Route: 058
     Dates: start: 20100831
  4. CIPROFLOXACIN [Concomitant]
  5. HYDROCHLOROTHIAZIDE [Concomitant]
  6. MENEST [Concomitant]
  7. OMEPRAZOLE [Concomitant]
  8. METFORMIN HCL [Concomitant]
  9. VYTORIN [Concomitant]
  10. METOPROLOL TARTRATE [Concomitant]

REACTIONS (2)
  - UPPER RESPIRATORY TRACT INFECTION [None]
  - BRONCHITIS [None]
